FAERS Safety Report 6041017-3 (Version None)
Quarter: 2009Q1

REPORT INFORMATION
  Report Type: 
  Country: None (occurrence: None)
  Receive Date: 20090116
  Receipt Date: 20080826
  Transmission Date: 20090719
  Serious: No
  Sender: FDA-Public Use
  Company Number: US-BRISTOL-MYERS SQUIBB COMPANY-14278238

PATIENT
  Age: 14 Year
  Sex: Male

DRUGS (5)
  1. ABILIFY [Suspect]
     Indication: OPPOSITIONAL DEFIANT DISORDER
     Dosage: DRUG INTERRUPTED ON: 24-JUL-2008 RESTARTED AT 1MG NEXT WEEK
     Route: 048
     Dates: start: 20080723
  2. ABILIFY [Suspect]
     Indication: ABNORMAL BEHAVIOUR
     Dosage: DRUG INTERRUPTED ON: 24-JUL-2008 RESTARTED AT 1MG NEXT WEEK
     Route: 048
     Dates: start: 20080723
  3. ABILIFY [Suspect]
     Indication: SCHIZOTYPAL PERSONALITY DISORDER
     Dosage: DRUG INTERRUPTED ON: 24-JUL-2008 RESTARTED AT 1MG NEXT WEEK
     Route: 048
     Dates: start: 20080723
  4. ABILIFY [Suspect]
     Indication: AGGRESSION
     Dosage: DRUG INTERRUPTED ON: 24-JUL-2008 RESTARTED AT 1MG NEXT WEEK
     Route: 048
     Dates: start: 20080723
  5. RITALIN [Concomitant]

REACTIONS (5)
  - CLUMSINESS [None]
  - GAIT DISTURBANCE [None]
  - PALLOR [None]
  - SOMNOLENCE [None]
  - VOMITING [None]
